FAERS Safety Report 8328791-8 (Version None)
Quarter: 2012Q2

REPORT INFORMATION
  Report Type: 
  Country: None (occurrence: None)
  Receive Date: 20120502
  Receipt Date: 20120424
  Transmission Date: 20120825
  Serious: Yes (Hospitalization, Other)
  Sender: FDA-Public Use
  Company Number: US-ELI_LILLY_AND_COMPANY-US201204008653

PATIENT
  Age: 46 Year
  Sex: Female

DRUGS (1)
  1. GEMCITABINE HYDROCHLORIDE [Suspect]
     Indication: PANCREATIC CARCINOMA RESECTABLE
     Dosage: UNK,G

REACTIONS (4)
  - HAEMOLYTIC URAEMIC SYNDROME [None]
  - RENAL FAILURE ACUTE [None]
  - LIVEDO RETICULARIS [None]
  - HYPERTENSIVE EMERGENCY [None]
